FAERS Safety Report 7952715 (Version 3)
Quarter: 2020Q4

REPORT INFORMATION
  Report Type: Spontaneous
  Country: DE (occurrence: DE)
  Receive Date: 20110519
  Receipt Date: 20201005
  Transmission Date: 20210114
  Serious: Yes (Death, Life-Threatening, Hospitalization, Other)
  Sender: FDA-Public Use
  Company Number: DE-PFIZER INC-2007020917

PATIENT
  Age: 74 Year
  Sex: Male
  Weight: 69 kg

DRUGS (16)
  1. ZELDOX [Suspect]
     Active Substance: ZIPRASIDONE
     Dosage: 160 MG PER DAY
     Route: 048
     Dates: start: 20060520, end: 20060522
  2. ALLOPURINOL. [Concomitant]
     Active Substance: ALLOPURINOL
     Dosage: 300 MG, 1X/DAY
     Route: 048
     Dates: end: 20060530
  3. ZELDOX [Suspect]
     Active Substance: ZIPRASIDONE
     Indication: DEMENTIA
     Dosage: 80 MG PER DAY
     Route: 048
     Dates: start: 20060508, end: 20060515
  4. ROCEPHIN [Concomitant]
     Active Substance: CEFTRIAXONE SODIUM
     Dosage: 2000 MG, DAILY
     Route: 042
     Dates: start: 20060527, end: 20060530
  5. ORFIRIL [Suspect]
     Active Substance: VALPROATE SODIUM
     Dosage: 150MG/DAY TO 900MG/DAY
     Route: 048
     Dates: start: 20060320, end: 20060530
  6. ZELDOX [Suspect]
     Active Substance: ZIPRASIDONE
     Indication: RESTLESSNESS
     Dosage: 40 MG PER DAY
     Route: 048
     Dates: start: 20060503, end: 20060507
  7. ZELDOX [Suspect]
     Active Substance: ZIPRASIDONE
     Dosage: 120 MG, 1X/DAY
     Route: 048
     Dates: start: 20060516, end: 20060519
  8. ZYPREXA [Suspect]
     Active Substance: OLANZAPINE
     Dosage: 5 MG, DAILY
     Route: 048
     Dates: start: 20060527, end: 20060530
  9. AMBROXOL [Concomitant]
     Active Substance: AMBROXOL
     Dosage: 15 MG, DAILY
     Route: 042
     Dates: start: 20060527, end: 20060530
  10. ZYPREXA [Suspect]
     Active Substance: OLANZAPINE
     Dosage: 2.5 MG, DAILY
     Route: 048
     Dates: start: 20060524, end: 20060526
  11. CIBADREX [Concomitant]
     Active Substance: BENAZEPRIL HYDROCHLORIDE
     Dosage: 1 TABLET, DAILY
     Route: 048
     Dates: end: 20060530
  12. JONOSTERIL [CALCIUM ACETATE;MAGNESIUM ACETATE;POTASSIUM ACETATE;SODIUM [Concomitant]
     Dosage: 1500 ML, DAILY
     Route: 042
     Dates: start: 20060527, end: 20060530
  13. ASPIRIN. [Concomitant]
     Active Substance: ASPIRIN
     Dosage: 100 MG, DAILY
     Route: 048
     Dates: end: 20060530
  14. CLONIDINE. [Concomitant]
     Active Substance: CLONIDINE
     Dosage: 0.25 MG, 1X/DAY
     Route: 048
     Dates: end: 20060530
  15. CORVATON [Concomitant]
     Active Substance: MOLSIDOMINE
     Dosage: 8 MG, DAILY
     Route: 048
     Dates: end: 20060530
  16. ALNA [Concomitant]
     Active Substance: TAMSULOSIN HYDROCHLORIDE
     Dosage: 0.4 MG, DAILY
     Route: 048
     Dates: end: 20060530

REACTIONS (3)
  - Pneumonia [Fatal]
  - Camptocormia [Recovered/Resolved]
  - Dyskinesia [Recovered/Resolved]

NARRATIVE: CASE EVENT DATE: 20060521
